FAERS Safety Report 5051203-7 (Version None)
Quarter: 2006Q3

REPORT INFORMATION
  Report Type: 
  Country: None (occurrence: None)
  Receive Date: 20060714
  Receipt Date: 20051228
  Transmission Date: 20061208
  Serious: Yes (Hospitalization, Other)
  Sender: FDA-Public Use
  Company Number: JP-BRISTOL-MYERS SQUIBB COMPANY-13230529

PATIENT
  Age: 72 Year
  Sex: Male
  Weight: 47 kg

DRUGS (11)
  1. ERBITUX [Suspect]
     Indication: COLORECTAL CANCER
     Dosage: 440 MG/M2 12DEC05 (DAY 1) 250 MG/M2 16JAN06
     Route: 042
     Dates: start: 20051226, end: 20051226
  2. IRINOTECAN [Suspect]
     Indication: COLORECTAL CANCER
     Route: 042
     Dates: start: 20051212, end: 20051226
  3. OPSO [Concomitant]
     Route: 048
     Dates: start: 20051226, end: 20060105
  4. MAGNESIUM OXIDE [Concomitant]
     Route: 048
     Dates: start: 20051226, end: 20060102
  5. GASMOTIN [Concomitant]
     Route: 048
     Dates: start: 20051226, end: 20060102
  6. LINTON [Concomitant]
     Route: 048
     Dates: start: 20051226, end: 20060102
  7. NOVAMIN [Concomitant]
     Route: 048
     Dates: start: 20051226, end: 20060102
  8. PURSENNIDE [Concomitant]
     Route: 048
     Dates: start: 20051226, end: 20060102
  9. LORAZEPAM [Concomitant]
     Route: 048
     Dates: start: 20051226, end: 20060102
  10. TAKEPRON [Concomitant]
     Route: 048
     Dates: start: 20051226, end: 20060102
  11. OXYCONTIN [Concomitant]
     Dosage: 20-40 MG 2 TABS PER DAY ; 1 EVERY 12 HOURS, ORALLY
     Route: 048
     Dates: start: 20051226, end: 20060102

REACTIONS (2)
  - HAEMATEMESIS [None]
  - WHITE BLOOD CELL COUNT DECREASED [None]
